FAERS Safety Report 25090811 (Version 2)
Quarter: 2025Q2

REPORT INFORMATION
  Report Type: Spontaneous
  Country: US (occurrence: US)
  Receive Date: 20250318
  Receipt Date: 20250506
  Transmission Date: 20250716
  Serious: Yes (Hospitalization)
  Sender: GLAXOSMITHKLINE
  Company Number: US-GLAXOSMITHKLINE INC-US2025AMR031590

PATIENT

DRUGS (3)
  1. ATOVAQUONE [Interacting]
     Active Substance: ATOVAQUONE
     Indication: Product used for unknown indication
  2. RIFABUTIN [Interacting]
     Active Substance: RIFABUTIN
     Indication: Product used for unknown indication
  3. VORICONAZOLE [Concomitant]
     Active Substance: VORICONAZOLE
     Indication: Product used for unknown indication

REACTIONS (2)
  - Hospitalisation [Not Recovered/Not Resolved]
  - Drug interaction [Unknown]

NARRATIVE: CASE EVENT DATE: 20240226
